FAERS Safety Report 7309734-2 (Version None)
Quarter: 2011Q1

REPORT INFORMATION
  Report Type: 
  Country: None (occurrence: None)
  Receive Date: 20110224
  Receipt Date: 20110211
  Transmission Date: 20110831
  Serious: No
  Sender: FDA-Public Use
  Company Number: US-BIOGENIDEC-2010BI035436

PATIENT
  Sex: Female

DRUGS (1)
  1. TYSABRI [Suspect]
     Indication: MULTIPLE SCLEROSIS
     Route: 042
     Dates: start: 20100317

REACTIONS (10)
  - AMNESIA [None]
  - DRUG INEFFECTIVE [None]
  - INSOMNIA [None]
  - MEMORY IMPAIRMENT [None]
  - MUSCLE SPASTICITY [None]
  - FIBROMYALGIA [None]
  - DISTURBANCE IN ATTENTION [None]
  - PAIN [None]
  - COGNITIVE DISORDER [None]
  - BRADYPHRENIA [None]
